FAERS Safety Report 8181300 (Version 3)
Quarter: 2013Q2

REPORT INFORMATION
  Report Type: Report from Study
  Country: FR (occurrence: FR)
  Receive Date: 20111014
  Receipt Date: 20130422
  Transmission Date: 20140414
  Serious: Yes (Hospitalization)
  Sender: FDA-Public Use
  Company Number: FR-MPIJNJ-2011-02454

PATIENT
  Sex: 0

DRUGS (13)
  1. VELCADE [Suspect]
     Indication: PLASMA CELL MYELOMA
     Dosage: 1.3 MG, CYCLIC
     Route: 065
     Dates: start: 20110523, end: 20110526
  2. VELCADE [Suspect]
     Dosage: 1 MG, UNK
     Dates: end: 20110708
  3. REVLIMID [Suspect]
     Indication: PLASMA CELL MYELOMA
     Dosage: 25 MG, CYCLIC
     Route: 065
     Dates: start: 20110523, end: 20110526
  4. REVLIMID [Suspect]
     Dosage: 20 MG, UNK
     Dates: end: 20110709
  5. DEXAMETHASONE [Suspect]
     Indication: PLASMA CELL MYELOMA
     Dosage: 20 MG, CYCLIC
     Route: 065
     Dates: start: 20110523, end: 20110709
  6. PARACETAMOL [Concomitant]
     Dosage: 4 G, UNK
     Route: 048
     Dates: start: 20110418, end: 20110518
  7. INNOHEP                            /00889602/ [Concomitant]
     Dosage: UNK
     Route: 065
  8. ACUPAN [Concomitant]
     Dosage: UNK
     Route: 065
     Dates: start: 20110418, end: 20110518
  9. BACTRIM [Concomitant]
     Indication: PROPHYLAXIS
     Dosage: UNK DF, UNK
     Route: 048
     Dates: start: 20110523
  10. ZELITREX                           /01269701/ [Concomitant]
     Indication: PROPHYLAXIS
     Dosage: 500 MG, BID
     Route: 048
     Dates: start: 20110523
  11. AMOXICILLIN [Concomitant]
     Indication: PROPHYLAXIS
     Dosage: 2 G, UNK
     Route: 048
     Dates: start: 20110523
  12. LEXOMIL [Concomitant]
     Dosage: UNK
     Route: 048
     Dates: start: 20110523
  13. OXYCONTIN [Concomitant]
     Route: 065

REACTIONS (2)
  - Subcutaneous abscess [Recovered/Resolved]
  - Sepsis [Recovered/Resolved]
